FAERS Safety Report 9048771 (Version 2)
Quarter: 2013Q1

REPORT INFORMATION
  Report Type: Spontaneous
  Country: US (occurrence: US)
  Receive Date: 20130204
  Receipt Date: 20130305
  Transmission Date: 20140127
  Serious: No
  Sender: FDA-Public Use
  Company Number: US-AMGEN-USASP2013000888

PATIENT
  Age: 65 Year
  Sex: Male
  Weight: 133.33 kg

DRUGS (13)
  1. ENBREL [Suspect]
     Indication: RHEUMATOID ARTHRITIS
     Dosage: 50 MG, QWK
     Route: 058
     Dates: start: 201205
  2. ASPIRIN [Concomitant]
     Dosage: UNK
  3. BYSTOLIC [Concomitant]
     Dosage: UNK
  4. CRESTOR [Concomitant]
     Dosage: UNK
  5. DOXAZOSIN [Concomitant]
     Dosage: UNK
  6. LASIX                              /00032601/ [Concomitant]
     Dosage: UNK UNK, AS NECESSARY
  7. LOVAZA [Concomitant]
     Dosage: UNK
  8. METFORMIN [Concomitant]
     Dosage: UNK
  9. MULTIVITAMIN                       /00097801/ [Concomitant]
     Dosage: UNK
  10. NEXIUM                             /01479302/ [Concomitant]
     Dosage: UNK
  11. TEKTURNA [Concomitant]
     Dosage: UNK
  12. TESSALON PERLE [Concomitant]
  13. AMBIEN [Concomitant]
     Dosage: UNK UNK, AS NECESSARY

REACTIONS (4)
  - Cough [Not Recovered/Not Resolved]
  - Headache [Not Recovered/Not Resolved]
  - Myalgia [Recovered/Resolved]
  - Upper respiratory tract infection [Recovered/Resolved]
